FAERS Safety Report 18255743 (Version 1)
Quarter: 2020Q3

REPORT INFORMATION
  Report Type: Other
  Country: US (occurrence: US)
  Receive Date: 20200910
  Receipt Date: 20200910
  Transmission Date: 20201103
  Serious: No
  Sender: FDA-Public Use
  Company Number: US-LEADIANT BIOSCIENCES INC-2019STPI000367

PATIENT

DRUGS (11)
  1. PREDNISONE. [Concomitant]
     Active Substance: PREDNISONE
  2. ATOVAQUONE. [Concomitant]
     Active Substance: ATOVAQUONE
  3. POTASSIUM CHLORIDE. [Concomitant]
     Active Substance: POTASSIUM CHLORIDE
  4. MATULANE [Suspect]
     Active Substance: PROCARBAZINE HYDROCHLORIDE
     Indication: HODGKIN^S DISEASE
     Dosage: 50 MILLIGRAM, QD 4 CAPSULES 14DAYS ON , 14DAYS OFF
     Route: 065
     Dates: start: 20181208
  5. ONDANSETRON [Concomitant]
     Active Substance: ONDANSETRON
  6. SSD [Concomitant]
     Active Substance: SILVER SULFADIAZINE
  7. VALACYCLOVIR [VALACICLOVIR HYDROCHLORIDE] [Concomitant]
     Active Substance: VALACYCLOVIR HYDROCHLORIDE
  8. FUROSEMIDE. [Concomitant]
     Active Substance: FUROSEMIDE
  9. XARELTO [Concomitant]
     Active Substance: RIVAROXABAN
  10. AMIODARONE [Concomitant]
     Active Substance: AMIODARONE
  11. LEUKERAN [Concomitant]
     Active Substance: CHLORAMBUCIL

REACTIONS (1)
  - Nausea [Unknown]
